FAERS Safety Report 13939425 (Version 3)
Quarter: 2018Q1

REPORT INFORMATION
  Report Type: Spontaneous
  Country: BR (occurrence: BR)
  Receive Date: 20170906
  Receipt Date: 20180105
  Transmission Date: 20180508
  Serious: Yes (Hospitalization)
  Sender: FDA-Public Use
  Company Number: BR-BRISTOL-MYERS SQUIBB COMPANY-BMS-2017-078181

PATIENT
  Sex: Female
  Weight: 55 kg

DRUGS (2)
  1. OPDIVO [Suspect]
     Active Substance: NIVOLUMAB
     Indication: PRODUCT USED FOR UNKNOWN INDICATION
     Dosage: 136 MG, UNK
     Route: 042
     Dates: start: 2017
  2. OPDIVO [Suspect]
     Active Substance: NIVOLUMAB
     Indication: LUNG CANCER METASTATIC
     Dosage: 170 ML, Q2WK
     Route: 042
     Dates: start: 201708

REACTIONS (6)
  - Swelling [Unknown]
  - Decreased appetite [Unknown]
  - Infection [Unknown]
  - Weight decreased [Unknown]
  - Drug administration error [Unknown]
  - Localised oedema [Unknown]
